FAERS Safety Report 26091148 (Version 1)
Quarter: 2025Q4

REPORT INFORMATION
  Report Type: Spontaneous
  Country: US (occurrence: US)
  Receive Date: 20251126
  Receipt Date: 20251126
  Transmission Date: 20260118
  Serious: No
  Sender: BIOGEN
  Company Number: US-BIOGEN-2018BI00514754

PATIENT
  Age: 58 Year
  Sex: Female

DRUGS (5)
  1. TECFIDERA [Suspect]
     Active Substance: DIMETHYL FUMARATE
     Indication: Multiple sclerosis
     Dosage: DOSAGE TEXT:STARTING DOSE
  2. TECFIDERA [Suspect]
     Active Substance: DIMETHYL FUMARATE
     Dosage: DOSAGE TEXT:MAINTENANCE DOSE
  3. TECFIDERA [Suspect]
     Active Substance: DIMETHYL FUMARATE
     Dosage: DOSAGE TEXT:MAINTENANCE DOSE
     Dates: start: 20171114, end: 20180118
  4. REBIF REBIDOSE [Concomitant]
     Active Substance: INTERFERON BETA-1A
     Indication: Product used for unknown indication
     Dosage: DOSAGE TEXT:TITRATION
  5. LOSARTAN POTASSIUM [Concomitant]
     Active Substance: LOSARTAN POTASSIUM
     Indication: Product used for unknown indication

REACTIONS (7)
  - Fatigue [Not Recovered/Not Resolved]
  - Hypersensitivity [Unknown]
  - Dizziness [Unknown]
  - Abdominal pain upper [Not Recovered/Not Resolved]
  - Limb discomfort [Not Recovered/Not Resolved]
  - Drug intolerance [Unknown]
  - Nausea [Unknown]

NARRATIVE: CASE EVENT DATE: 20180120
